FAERS Safety Report 21838651 (Version 1)
Quarter: 2023Q1

REPORT INFORMATION
  Report Type: Spontaneous
  Country: US (occurrence: None)
  Receive Date: 20230108
  Receipt Date: 20230108
  Transmission Date: 20230418
  Serious: Yes (Disabling, Other)
  Sender: FDA-Public Use
  Company Number: None

PATIENT
  Age: 69 Year
  Sex: Male
  Weight: 112.5 kg

DRUGS (1)
  1. LATANOPROST [Suspect]
     Active Substance: LATANOPROST
     Indication: Glaucoma
     Dosage: OTHER QUANTITY : 1 DROP(S);?FREQUENCY : AT BEDTIME;?
     Route: 047
     Dates: start: 20190517, end: 20220524

REACTIONS (6)
  - Cough [None]
  - Supraventricular extrasystoles [None]
  - Ventricular tachycardia [None]
  - Supraventricular extrasystoles [None]
  - Scan myocardial perfusion abnormal [None]
  - Cardiac imaging procedure abnormal [None]

NARRATIVE: CASE EVENT DATE: 20220318
